FAERS Safety Report 9001441 (Version 2)
Quarter: 2013Q1

REPORT INFORMATION
  Report Type: Spontaneous
  Country: US (occurrence: US)
  Receive Date: 20130107
  Receipt Date: 20130301
  Transmission Date: 20140127
  Serious: Yes (Other)
  Sender: FDA-Public Use
  Company Number: US-ASTRAZENECA-2012SE95673

PATIENT
  Age: 68 Year
  Sex: Male
  Weight: 97.5 kg

DRUGS (12)
  1. BRILINTA [Suspect]
     Indication: CORONARY ARTERIAL STENT INSERTION
     Route: 048
     Dates: start: 20121211, end: 20121217
  2. LIPITOR [Suspect]
     Route: 048
     Dates: end: 201212
  3. IODINE [Suspect]
     Route: 065
  4. TAMSULOSIN HCL [Concomitant]
     Route: 048
     Dates: start: 20121214
  5. PREDNISONE [Concomitant]
     Route: 048
     Dates: start: 20121217
  6. PREDNISONE [Concomitant]
     Route: 048
  7. PREDNISONE [Concomitant]
     Route: 048
  8. CLOPIDOGREL BISULFATE [Concomitant]
     Route: 048
     Dates: start: 20121217
  9. PHENAZOPYRIDINE HCL [Concomitant]
     Route: 048
     Dates: end: 20121220
  10. DOXYCYCLINE HYCLATE [Concomitant]
     Route: 048
  11. ASPIRIN EC [Concomitant]
     Route: 048
  12. METROGEL [Concomitant]

REACTIONS (7)
  - Dysuria [Recovering/Resolving]
  - Dysuria [Recovering/Resolving]
  - Rash maculo-papular [Recovered/Resolved]
  - Weight decreased [Unknown]
  - Cough [Unknown]
  - Snoring [Unknown]
  - Drug hypersensitivity [Unknown]
